FAERS Safety Report 16255105 (Version 2)
Quarter: 2019Q2

REPORT INFORMATION
  Report Type: Spontaneous
  Country: FR (occurrence: FR)
  Receive Date: 20190430
  Receipt Date: 20190626
  Transmission Date: 20190711
  Serious: Yes (Hospitalization)
  Sender: FDA-Public Use
  Company Number: FR-ACCORD-124802

PATIENT
  Age: 72 Year
  Sex: Male
  Weight: 82 kg

DRUGS (5)
  1. ETOPOSIDE TEVA [Suspect]
     Active Substance: ETOPOSIDE
     Indication: LARGE CELL LUNG CANCER METASTATIC
     Dosage: ALSO RECEIVED 190 MG FROM 21-FEB-2019 TO 23-FEB-2019
     Route: 042
     Dates: start: 20190221, end: 20190221
  2. ONDANSETRON ACCORD [Concomitant]
     Active Substance: ONDANSETRON
     Route: 042
     Dates: start: 20190221, end: 20190221
  3. CARBOPLATIN ACCORD [Suspect]
     Active Substance: CARBOPLATIN
     Indication: LARGE CELL LUNG CANCER METASTATIC
     Dosage: STRENGTH: 10 MG/ML
     Route: 042
     Dates: start: 20190221, end: 20190221
  4. METHYLPREDNISOLONE MYLAN [Concomitant]
     Active Substance: METHYLPREDNISOLONE
     Indication: PROPHYLAXIS OF NAUSEA AND VOMITING
     Dosage: ALSO RECEIVED 16 MG 21-FEB-2019 TO 21-FEB-2019
     Route: 042
     Dates: start: 20190221, end: 20190223
  5. EMEND [Concomitant]
     Active Substance: APREPITANT
     Indication: PROPHYLAXIS OF NAUSEA AND VOMITING
     Dosage: ALSO RECEIVED FROM 22-FEB-2019 FROM 25-FEB-2019.
     Route: 048
     Dates: start: 20190221, end: 20190221

REACTIONS (2)
  - Pyrexia [Recovered/Resolved]
  - Pancytopenia [Recovered/Resolved]

NARRATIVE: CASE EVENT DATE: 20190301
